FAERS Safety Report 7575423-2 (Version None)
Quarter: 2011Q2

REPORT INFORMATION
  Report Type: 
  Country: None (occurrence: None)
  Receive Date: 20110627
  Receipt Date: 20110622
  Transmission Date: 20111010
  Serious: Yes (Life-Threatening, Other)
  Sender: FDA-Public Use
  Company Number: JP-ASTRAZENECA-2010SE48441

PATIENT
  Age: 82 Year
  Sex: Male

DRUGS (3)
  1. PROPOFOL [Suspect]
     Indication: INDUCTION AND MAINTENANCE OF ANAESTHESIA
     Dosage: INTRAVENOUS INFUSION
     Route: 042
  2. PROPOFOL [Suspect]
     Dosage: INTRAVENOUS INFUSION
     Route: 042
  3. REMIFENTANIL HYDROCHLORIDE [Concomitant]
     Route: 042

REACTIONS (2)
  - ANGIOPATHY [None]
  - CARDIAC ARREST [None]
